FAERS Safety Report 7376480-9 (Version None)
Quarter: 2011Q1

REPORT INFORMATION
  Report Type: 
  Country: None (occurrence: None)
  Receive Date: 20110325
  Receipt Date: 20110218
  Transmission Date: 20110831
  Serious: Yes (Hospitalization, Other)
  Sender: FDA-Public Use
  Company Number: US-ELI_LILLY_AND_COMPANY-US201007001398

PATIENT
  Sex: Female
  Weight: 68 kg

DRUGS (1)
  1. BYETTA [Suspect]
     Dosage: UNK, 2/D
     Route: 065
     Dates: start: 20050908, end: 20100216

REACTIONS (2)
  - OFF LABEL USE [None]
  - THYROID CANCER [None]
